FAERS Safety Report 16768826 (Version 1)
Quarter: 2019Q3

REPORT INFORMATION
  Report Type: Spontaneous
  Country: US (occurrence: US)
  Receive Date: 20190903
  Receipt Date: 20190903
  Transmission Date: 20191005
  Serious: No
  Sender: FDA-Public Use
  Company Number: US-SA-2019SA240331

PATIENT
  Age: 71 Year
  Sex: Female

DRUGS (8)
  1. ASPIRIN 81 [Concomitant]
     Active Substance: ASPIRIN
  2. LUTEIN [ZEAXANTHIN] [Concomitant]
  3. LISINOPRIL. [Concomitant]
     Active Substance: LISINOPRIL
  4. BONIVA [Concomitant]
     Active Substance: IBANDRONATE SODIUM
  5. SIMVASTATIN. [Concomitant]
     Active Substance: SIMVASTATIN
  6. DUPIXENT [Suspect]
     Active Substance: DUPILUMAB
     Indication: PRODUCT USED FOR UNKNOWN INDICATION
     Dosage: 300 MG, QOW
     Route: 058
     Dates: start: 20181120
  7. CITRACAL-D [Concomitant]
     Active Substance: CALCIUM CITRATE\CHOLECALCIFEROL
  8. PRESERVISION [Concomitant]
     Active Substance: MINERALS\VITAMINS

REACTIONS (2)
  - Pruritus generalised [Recovered/Resolved]
  - Therapeutic response decreased [Recovered/Resolved]

NARRATIVE: CASE EVENT DATE: 20190710
